FAERS Safety Report 8611769-4 (Version None)
Quarter: 2012Q3

REPORT INFORMATION
  Report Type: 
  Country: None (occurrence: None)
  Receive Date: 20120822
  Receipt Date: 20120814
  Transmission Date: 20120928
  Serious: Yes (Hospitalization)
  Sender: FDA-Public Use
  Company Number: US-BAYER-2012-083880

PATIENT
  Age: 51 Year
  Sex: Female
  Weight: 70.748 kg

DRUGS (22)
  1. PROMETHAZINE DM [Concomitant]
  2. AZITHROMYCIN [Concomitant]
  3. DECONGESTANTS AND ANTIALLERGICS [Concomitant]
  4. TRIAMTERENE AND HYDROCHLOROTHIAZIDE [Concomitant]
     Dosage: 37.5-25
  5. LORCET-HD [Concomitant]
  6. COMPAZINE [Concomitant]
     Indication: PAIN
  7. PROCHLORPERAZINE MALEATE [Concomitant]
     Indication: VOMITING
  8. SENNOSIDE [Concomitant]
  9. TAMIFLU [Concomitant]
     Dosage: 75 MG, UNK
  10. ANTIHISTAMINES [Concomitant]
  11. MORPHINE [Concomitant]
     Indication: PAIN
  12. HYDROCODONE BITARTRATE + ACETAMINOPHEN [Concomitant]
     Indication: PAIN
     Dosage: 10-650 MG
  13. DROSPIRENONE AND ETHINYL ESTRADIOL [Suspect]
  14. ZOFRAN [Concomitant]
  15. PROCHLORPERAZINE MALEATE [Concomitant]
     Indication: NAUSEA
     Dosage: 10 MG, QID
  16. YASMIN [Suspect]
     Indication: HORMONE THERAPY
  17. LEVAQUIN [Concomitant]
     Dosage: 750 MG, UNK
  18. METHYLPREDNISOLONE [Concomitant]
     Dosage: 4
  19. SINGULAIR [Concomitant]
     Dosage: 10 MG, UNK
  20. DOCUSATE SODIUM [Concomitant]
  21. YASMIN [Suspect]
     Indication: UTERINE HAEMORRHAGE
  22. SIMVASTATIN [Concomitant]
     Dosage: 20 MG, UNK

REACTIONS (1)
  - INTRACRANIAL VENOUS SINUS THROMBOSIS [None]
